FAERS Safety Report 23271594 (Version 1)
Quarter: 2023Q4

REPORT INFORMATION
  Report Type: Spontaneous
  Country: US (occurrence: US)
  Receive Date: 20231207
  Receipt Date: 20231207
  Transmission Date: 20240110
  Serious: Yes (Hospitalization)
  Sender: FDA-Public Use
  Company Number: US-BAYER-2023A175100

PATIENT
  Age: 66 Year
  Sex: Female

DRUGS (1)
  1. ADEMPAS [Suspect]
     Active Substance: RIOCIGUAT

REACTIONS (3)
  - Oedema [None]
  - Hypoxia [None]
  - Dyspnoea [None]
